FAERS Safety Report 7032933-4 (Version None)
Quarter: 2010Q4

REPORT INFORMATION
  Report Type: 
  Country: None (occurrence: None)
  Receive Date: 20101004
  Receipt Date: 20100923
  Transmission Date: 20110411
  Serious: Yes (Other)
  Sender: FDA-Public Use
  Company Number: 2010US003923

PATIENT
  Age: 34 Year
  Sex: Female

DRUGS (12)
  1. PROGRAF [Suspect]
     Indication: LUNG TRANSPLANT
     Dosage: 3 MG, BID, ORAL
     Route: 048
  2. AZATHIOPRINE [Concomitant]
  3. PREDNISONE TAB [Concomitant]
  4. DILTIAZEM [Concomitant]
  5. METHYLDOPA [Concomitant]
  6. CLONIDINE [Concomitant]
  7. ACYCLOVIR [Concomitant]
  8. BACTRIM [Concomitant]
  9. OMEPRAZOLE [Concomitant]
  10. CALCIUM (CALCIUM) [Concomitant]
  11. MULTIVITAMIN [Concomitant]
  12. COLACE (DOCUSATE SODIUM) [Concomitant]

REACTIONS (3)
  - ABORTION SPONTANEOUS [None]
  - DRUG EXPOSURE DURING PREGNANCY [None]
  - PREGNANCY [None]
